FAERS Safety Report 15619395 (Version 1)
Quarter: 2018Q4

REPORT INFORMATION
  Report Type: Report from Study
  Country: DE (occurrence: DE)
  Receive Date: 20181115
  Receipt Date: 20181115
  Transmission Date: 20190205
  Serious: Yes (Hospitalization)
  Sender: FDA-Public Use
  Company Number: DE-ACCORD-091976

PATIENT
  Sex: Male

DRUGS (14)
  1. METHOTREXATE. [Suspect]
     Active Substance: METHOTREXATE
     Indication: RHEUMATOID ARTHRITIS
     Route: 065
  2. FOLIC ACID. [Concomitant]
     Active Substance: FOLIC ACID
  3. SIMVASTATIN. [Concomitant]
     Active Substance: SIMVASTATIN
  4. METOPROLOL. [Concomitant]
     Active Substance: METOPROLOL
  5. HYDROCHLOROTHIAZIDE. [Concomitant]
     Active Substance: HYDROCHLOROTHIAZIDE
  6. RANOLAZINE. [Concomitant]
     Active Substance: RANOLAZINE
  7. VIGANTOLETTEN [Concomitant]
     Active Substance: CHOLECALCIFEROL
  8. RAMIPRIL. [Concomitant]
     Active Substance: RAMIPRIL
  9. ACETYLSALICYLIC ACID [Concomitant]
     Active Substance: ASPIRIN
  10. TILIDIN PLUS [Concomitant]
  11. ROACTEMRA [Suspect]
     Active Substance: TOCILIZUMAB
     Indication: RHEUMATOID ARTHRITIS
     Dosage: DAILY DOSE: 800 MG MILLGRAM(S) EVERY 4 WEEKS
     Route: 042
  12. AMLODIPINE [Concomitant]
     Active Substance: AMLODIPINE BESYLATE
  13. METAMIZOLE SODIUM [Concomitant]
     Active Substance: METAMIZOLE SODIUM
  14. PANTOPRAZOLE [Concomitant]
     Active Substance: PANTOPRAZOLE

REACTIONS (2)
  - Hypertensive crisis [Recovered/Resolved]
  - Dyspnoea [Recovered/Resolved]

NARRATIVE: CASE EVENT DATE: 20170130
